FAERS Safety Report 5356836-6 (Version None)
Quarter: 2007Q2

REPORT INFORMATION
  Report Type: 
  Country: None (occurrence: None)
  Receive Date: 20070614
  Receipt Date: 20061030
  Transmission Date: 20071010
  Serious: No
  Sender: FDA-Public Use
  Company Number: US-ASTRAZENECA-2006UW20768

PATIENT
  Age: 83 Year
  Sex: Female
  Weight: 53.5 kg

DRUGS (4)
  1. ATACAND [Suspect]
     Indication: HYPERTENSION
     Route: 048
     Dates: start: 20060901
  2. THYROID TAB [Concomitant]
  3. PREMARIN [Concomitant]
  4. LOVASTATIN [Concomitant]

REACTIONS (2)
  - MYALGIA [None]
  - PAIN [None]
